FAERS Safety Report 8533260-6 (Version None)
Quarter: 2012Q3

REPORT INFORMATION
  Report Type: 
  Country: None (occurrence: None)
  Receive Date: 20120724
  Receipt Date: 20120712
  Transmission Date: 20120928
  Serious: Yes (Hospitalization)
  Sender: FDA-Public Use
  Company Number: JP-ELI_LILLY_AND_COMPANY-JP201206007939

PATIENT
  Sex: Male
  Weight: 48 kg

DRUGS (11)
  1. PROMACTA [Concomitant]
     Indication: GASTRIC ULCER
     Dosage: 75 MG, BID
     Route: 048
  2. VERAPAMIL HCL [Concomitant]
     Indication: ARRHYTHMIA
     Dosage: 40 MG, BID
     Route: 048
  3. FERROUS CITRATE [Concomitant]
     Indication: IRON DEFICIENCY ANAEMIA
     Dosage: 50 MG, BID
     Route: 048
  4. WARFARIN SODIUM [Concomitant]
     Indication: ANGINA PECTORIS
     Dosage: 1.75 MG, UNK
     Route: 048
  5. VESICARE [Concomitant]
     Indication: HYPERTONIC BLADDER
     Dosage: 5 MG, UNK
     Route: 048
     Dates: start: 20120523
  6. CANDESARTAN CILEXETIL [Concomitant]
     Indication: HYPERTENSION
     Dosage: 8 MG, UNK
     Route: 048
  7. FORTEO [Suspect]
     Indication: OSTEOPOROSIS
     Dosage: 20 UG, QD
     Route: 058
     Dates: start: 20120522, end: 20120621
  8. RABEPRAZOLE SODIUM [Concomitant]
     Indication: GASTROOESOPHAGEAL REFLUX DISEASE
     Dosage: 10 MG, UNK
     Route: 048
  9. LASIX [Concomitant]
     Indication: HYPERTENSION
     Dosage: 20 MG, UNK
     Route: 048
  10. ALLOPURINOL [Concomitant]
     Indication: HYPERURICAEMIA
     Dosage: 50 MG, UNK
     Route: 048
  11. ISOSORBIDE MONONITRATE [Concomitant]
     Indication: ANGINA PECTORIS
     Dosage: 20 MG, BID
     Route: 048

REACTIONS (1)
  - RENAL FAILURE [None]
